FAERS Safety Report 8589129-4 (Version None)
Quarter: 2012Q3

REPORT INFORMATION
  Report Type: 
  Country: None (occurrence: None)
  Receive Date: 20120813
  Receipt Date: 20120806
  Transmission Date: 20120928
  Serious: Yes (Hospitalization, Other)
  Sender: FDA-Public Use
  Company Number: US-ASTELLAS-2012US005006

PATIENT
  Age: 78 Year
  Sex: Female
  Weight: 40 kg

DRUGS (20)
  1. ERLOTINIB HYDROCHLORIDE [Suspect]
     Indication: NON-SMALL CELL LUNG CANCER METASTATIC
     Dosage: 150 MG, UID/QD
     Route: 048
     Dates: start: 20120504, end: 20120625
  2. ALBUTEROL [Concomitant]
     Indication: PRODUCT USED FOR UNKNOWN INDICATION
     Dosage: 1 PUFF, PRN
     Route: 065
     Dates: start: 20120425
  3. LEVOTHYROXINE SODIUM [Concomitant]
     Indication: THYROID THERAPY
     Dosage: 125 UG, UID/QD
     Route: 048
     Dates: start: 20120322
  4. SENNA [Concomitant]
     Indication: CONSTIPATION
     Dosage: 1-4 TABLETS, BID
     Route: 048
  5. DASATINIB [Suspect]
     Dosage: 20 MG, UID/QD
     Route: 048
     Dates: start: 20120504, end: 20120625
  6. ZOFRAN ODT [Concomitant]
     Indication: NAUSEA
     Dosage: 8 MG, QID PRN
     Route: 048
     Dates: start: 20120511
  7. HYDROCODONE BITARTRATE + ACETAMINOPHEN [Concomitant]
     Indication: PAIN
     Dosage: 10/325 MG, Q4H WHILE AWAKE
     Route: 048
  8. METFORMIN HCL [Concomitant]
     Indication: DIABETES MELLITUS
     Dosage: 1000 MG, BID
     Route: 048
     Dates: start: 20120322, end: 20120601
  9. METOCLOPRAMIDE [Concomitant]
     Indication: APPETITE DISORDER
     Dosage: 10 MG, BEFORE MEALS AND AT BEDTIME
     Route: 048
  10. ATORVASTATIN CALCIUM [Concomitant]
     Indication: BLOOD CHOLESTEROL
     Dosage: 20 MG, UID/QD
     Route: 048
     Dates: start: 20120322
  11. BENZONATATE [Concomitant]
     Indication: COUGH
     Dosage: 100 MG, TID
     Route: 048
     Dates: start: 20120504
  12. METOCLOPRAMIDE [Concomitant]
     Indication: NAUSEA
  13. GEMFIBROZIL [Concomitant]
     Indication: DIABETES MELLITUS
     Dosage: 600 MG, BID
     Route: 048
     Dates: start: 20120322
  14. XYLOXYLIN [Concomitant]
     Indication: OROPHARYNGEAL PAIN
     Dosage: 15 ML, BEFORE MEALS AND AT BEDTIME
     Route: 048
     Dates: start: 20120409
  15. ZOFRAN ODT [Concomitant]
     Indication: VOMITING
  16. FLUTICASONE PROPIONATE [Concomitant]
     Indication: PRODUCT USED FOR UNKNOWN INDICATION
     Dosage: 1 PUFF, PRN
     Route: 055
     Dates: start: 20120425
  17. IRON [Concomitant]
     Indication: PRODUCT USED FOR UNKNOWN INDICATION
     Dosage: 1 DF, BID
     Dates: start: 20120619
  18. DASATINIB [Suspect]
     Indication: NON-SMALL CELL LUNG CANCER METASTATIC
     Dosage: 50 MG, UID/QD
     Route: 048
     Dates: start: 20120504, end: 20120625
  19. GABAPENTIN [Concomitant]
     Indication: PAIN
     Dosage: 300 MG, Q6 HOURS
     Route: 048
  20. LOSARTAN/HYDROCHLOORTHIAZIDE [Concomitant]
     Indication: BLOOD PRESSURE
     Dosage: 12.5/50 MG, UID/QD
     Route: 048
     Dates: start: 20120322

REACTIONS (20)
  - DYSPNOEA [None]
  - FAILURE TO THRIVE [None]
  - HYPERKALAEMIA [None]
  - RENAL FAILURE [None]
  - DIARRHOEA [None]
  - PLEURAL EFFUSION [None]
  - URINARY TRACT INFECTION [None]
  - DECREASED APPETITE [None]
  - ANAEMIA [None]
  - COLITIS [None]
  - PNEUMOTHORAX [None]
  - ACUTE PRERENAL FAILURE [None]
  - STAPHYLOCOCCAL BACTERAEMIA [None]
  - HYPONATRAEMIA [None]
  - HYPOCALCAEMIA [None]
  - PNEUMONIA [None]
  - ILEUS [None]
  - DEHYDRATION [None]
  - MENTAL STATUS CHANGES [None]
  - GASTROINTESTINAL HAEMORRHAGE [None]
